FAERS Safety Report 16276154 (Version 1)
Quarter: 2019Q2

REPORT INFORMATION
  Report Type: Spontaneous
  Country: US (occurrence: US)
  Receive Date: 20190401
  Receipt Date: 20190401
  Transmission Date: 20190711
  Serious: No
  Sender: FDA-Public Use
  Company Number: None

PATIENT
  Age: 69 Year
  Sex: Female
  Weight: 94.35 kg

DRUGS (2)
  1. BENLYSTA [Suspect]
     Active Substance: BELIMUMAB
     Indication: SYSTEMIC LUPUS ERYTHEMATOSUS
     Dosage: ?          OTHER FREQUENCY:WK1,2,4 OVER 1HR;?
     Route: 042
     Dates: start: 201711
  2. SODIUM CHLORIDE 0.9% SOLUTION [Suspect]
     Active Substance: SODIUM CHLORIDE
     Indication: SYSTEMIC LUPUS ERYTHEMATOSUS
     Dosage: ?          OTHER DOSE:UUD W/BENLYSTA INF;?
     Dates: start: 201804

REACTIONS (1)
  - Labyrinthitis [None]
